FAERS Safety Report 16890430 (Version 1)
Quarter: 2019Q4

REPORT INFORMATION
  Report Type: Report from Study
  Country: IT (occurrence: IT)
  Receive Date: 20191007
  Receipt Date: 20191007
  Transmission Date: 20200122
  Serious: Yes (Other)
  Sender: FDA-Public Use
  Company Number: IT-ROCHE-2428183

PATIENT
  Sex: Female

DRUGS (3)
  1. BEVACIZUMAB. [Suspect]
     Active Substance: BEVACIZUMAB
     Indication: OVARIAN CANCER
     Route: 042
  2. TRABECTEDIN [Suspect]
     Active Substance: TRABECTEDIN
     Indication: OVARIAN CANCER
     Route: 042
  3. CARBOPLATIN. [Suspect]
     Active Substance: CARBOPLATIN
     Indication: OVARIAN CANCER
     Route: 065

REACTIONS (37)
  - Syncope [Unknown]
  - Embolism [Unknown]
  - White blood cell count decreased [Unknown]
  - Hepatotoxicity [Unknown]
  - Aspartate aminotransferase increased [Unknown]
  - Vascular access complication [Unknown]
  - Blood creatine phosphokinase increased [Unknown]
  - Hyponatraemia [Unknown]
  - Platelet count decreased [Unknown]
  - Urinary tract infection [Unknown]
  - Seizure [Unknown]
  - Cardiac failure [Unknown]
  - Left ventricular dysfunction [Unknown]
  - Intestinal obstruction [Unknown]
  - Haemorrhoids [Unknown]
  - Fatigue [Unknown]
  - Weight increased [Unknown]
  - Dysarthria [Unknown]
  - Neurotoxicity [Unknown]
  - Hypertension [Unknown]
  - Stomatitis [Unknown]
  - Hypomagnesaemia [Unknown]
  - Alanine aminotransferase increased [Unknown]
  - Dyspnoea [Unknown]
  - Obstructive airways disorder [Unknown]
  - Hypokalaemia [Unknown]
  - Haemorrhoidal haemorrhage [Unknown]
  - Blood bilirubin increased [Unknown]
  - Gamma-glutamyltransferase increased [Unknown]
  - Lymphocyte count decreased [Unknown]
  - Neutrophil count decreased [Unknown]
  - Mucosal inflammation [Unknown]
  - Febrile neutropenia [Unknown]
  - Hypocalcaemia [Unknown]
  - Anaemia [Unknown]
  - Proteinuria [Unknown]
  - Hypersensitivity [Unknown]
